FAERS Safety Report 17666592 (Version 1)
Quarter: 2020Q2

REPORT INFORMATION
  Report Type: Report from Study
  Country: CO (occurrence: CO)
  Receive Date: 20200414
  Receipt Date: 20200414
  Transmission Date: 20200713
  Serious: Yes (Other)
  Sender: FDA-Public Use
  Company Number: CO-JNJFOC-20191207954

PATIENT
  Age: 45 Year
  Sex: Female
  Weight: 61 kg

DRUGS (7)
  1. STELARA [Suspect]
     Active Substance: USTEKINUMAB
     Indication: PSORIASIS
     Dosage: WEEK 0 ON 05/APR/2018, WK 4 ON 15-JUN-2018, WEEK 12 ON 04-SEP-2018
     Route: 058
     Dates: start: 20180405
  2. DABIGATRAN [Concomitant]
     Active Substance: DABIGATRAN
     Route: 065
  3. ADVIL [Suspect]
     Active Substance: IBUPROFEN
     Indication: INFLUENZA
     Route: 065
  4. STELARA [Suspect]
     Active Substance: USTEKINUMAB
     Dosage: WEEK 12
     Route: 058
     Dates: start: 20200218
  5. STELARA [Suspect]
     Active Substance: USTEKINUMAB
     Dosage: WEEK 4
     Route: 058
     Dates: start: 20180615, end: 20180615
  6. STELARA [Suspect]
     Active Substance: USTEKINUMAB
     Dosage: WEEK 12?LAST ADMINISTRATION OF USTEKINUMAB ON 04-SEP-2019
     Route: 058
     Dates: start: 20180904, end: 20180904
  7. METOPROLOL. [Concomitant]
     Active Substance: METOPROLOL
     Route: 065

REACTIONS (6)
  - Psoriasis [Recovered/Resolved]
  - Tachycardia [Recovering/Resolving]
  - Skin laceration [Not Recovered/Not Resolved]
  - Influenza like illness [Recovering/Resolving]
  - Nasopharyngitis [Not Recovered/Not Resolved]
  - Meningitis [Recovered/Resolved]

NARRATIVE: CASE EVENT DATE: 20180904
